FAERS Safety Report 15418193 (Version 2)
Quarter: 2018Q4

REPORT INFORMATION
  Report Type: Spontaneous
  Country: US (occurrence: US)
  Receive Date: 20180924
  Receipt Date: 20181013
  Transmission Date: 20190204
  Serious: Yes (Hospitalization)
  Sender: FDA-Public Use
  Company Number: US-TEVA-2018-US-955271

PATIENT
  Age: 60 Year
  Sex: Male
  Weight: 105 kg

DRUGS (21)
  1. ELIQUIS [Concomitant]
     Active Substance: APIXABAN
  2. LISINOPRIL. [Concomitant]
     Active Substance: LISINOPRIL
  3. SPIRONOLACTONE. [Concomitant]
     Active Substance: SPIRONOLACTONE
  4. TUJEO [Concomitant]
  5. ASPIRIN. [Concomitant]
     Active Substance: ASPIRIN
  6. ALLOPURINOL. [Concomitant]
     Active Substance: ALLOPURINOL
  7. CORLANOR [Concomitant]
     Active Substance: IVABRADINE HYDROCHLORIDE
  8. CARVEDILOL. [Concomitant]
     Active Substance: CARVEDILOL
  9. PANTOPRAZOLE [Concomitant]
     Active Substance: PANTOPRAZOLE
  10. ROSUVASTATIN. [Concomitant]
     Active Substance: ROSUVASTATIN
  11. ISOSORBIDE. [Concomitant]
     Active Substance: ISOSORBIDE
  12. AMIODARONE [Concomitant]
     Active Substance: AMIODARONE
  13. RANEXA [Concomitant]
     Active Substance: RANOLAZINE
  14. HYDROXYUREA. [Concomitant]
     Active Substance: HYDROXYUREA
  15. ENTRESTO [Concomitant]
     Active Substance: SACUBITRIL\VALSARTAN
  16. GEMFIBROZIL. [Concomitant]
     Active Substance: GEMFIBROZIL
  17. HUMALOG [Concomitant]
     Active Substance: INSULIN LISPRO
  18. SYNRIBO [Suspect]
     Active Substance: OMACETAXINE MEPESUCCINATE
     Dosage: 2.7MG (0.77ML), SUBCUTANEOUS TWICE DAILY FOR 14 DAYS
     Route: 058
     Dates: start: 20180817
  19. DALIRESP [Concomitant]
     Active Substance: ROFLUMILAST
  20. DIGOXIN. [Concomitant]
     Active Substance: DIGOXIN
  21. FUROSEMIDE. [Concomitant]
     Active Substance: FUROSEMIDE

REACTIONS (1)
  - Laboratory test abnormal [Unknown]

NARRATIVE: CASE EVENT DATE: 20180907
